FAERS Safety Report 8582467-0 (Version None)
Quarter: 2012Q3

REPORT INFORMATION
  Report Type: 
  Country: None (occurrence: None)
  Receive Date: 20120809
  Receipt Date: 20120801
  Transmission Date: 20120928
  Serious: Yes (Other)
  Sender: FDA-Public Use
  Company Number: CA-JNJFOC-20120800716

PATIENT
  Sex: Male
  Weight: 87 kg

DRUGS (4)
  1. REMICADE [Suspect]
     Indication: CROHN'S DISEASE
     Route: 042
     Dates: start: 20090709
  2. TYLENOL [Concomitant]
     Route: 048
  3. HYDROCORTISONE [Concomitant]
     Route: 042
  4. BENADRYL [Concomitant]
     Route: 065

REACTIONS (1)
  - NEPHROLITHIASIS [None]
